FAERS Safety Report 4786718-X (Version None)
Quarter: 2005Q4

REPORT INFORMATION
  Report Type: 
  Country: None (occurrence: None)
  Receive Date: 20051003
  Receipt Date: 20051003
  Transmission Date: 20060501
  Serious: Yes (Hospitalization)
  Sender: FDA-Public Use
  Company Number: None

PATIENT
  Age: 67 Year
  Sex: Male
  Weight: 83.9154 kg

DRUGS (10)
  1. INSULIN ASPART HUMAN  100 UNITS/ML [Suspect]
     Indication: DIABETES MELLITUS
     Dosage: 5 UNITS  BID SQ
     Route: 058
     Dates: start: 20050210, end: 20050926
  2. INSULIN, LISPRO  100 UNITS/ML [Suspect]
     Indication: DIABETES MELLITUS
     Dosage: 10 UNITS DAILY SQ
     Route: 058
     Dates: start: 20050210, end: 20050926
  3. FUROSEMIDE [Concomitant]
  4. METOLAZONE [Concomitant]
  5. TERAZOSIN HCL [Concomitant]
  6. CAVEDILOL [Concomitant]
  7. FINASTERIDE [Concomitant]
  8. HYDRALAZINE HCL [Concomitant]
  9. ISOSORBIDE DINITRATE [Concomitant]
  10. LOSARTAN POTASSIUM [Concomitant]

REACTIONS (11)
  - ABDOMINAL PAIN [None]
  - DIZZINESS [None]
  - FALL [None]
  - HEAD INJURY [None]
  - HEADACHE [None]
  - HYPOGLYCAEMIA [None]
  - INCORRECT DOSE ADMINISTERED [None]
  - NAUSEA [None]
  - VERTIGO [None]
  - VISION BLURRED [None]
  - VOMITING [None]
